FAERS Safety Report 5678262-2 (Version None)
Quarter: 2008Q1

REPORT INFORMATION
  Report Type: 
  Country: None (occurrence: None)
  Receive Date: 20080319
  Receipt Date: 20080304
  Transmission Date: 20080703
  Serious: Yes (Hospitalization)
  Sender: FDA-Public Use
  Company Number: 2008020885

PATIENT
  Age: 87 Year
  Sex: Female

DRUGS (7)
  1. FRAGMIN [Suspect]
     Dosage: 5000 I.U. (5000 I.U., 1 IN 24 HR), SUBCUTANEOUS
     Route: 058
     Dates: start: 20071030, end: 20071031
  2. KARDEGIC (ACETYLSALICYLATE LYSINE) [Suspect]
     Dosage: 75 MG (75 MG, 1 IN 24 HR), ORAL
     Route: 048
     Dates: start: 20020401, end: 20071018
  3. LOVENOX [Suspect]
     Dosage: 4000 I.U. (4000 I.U., 1 IN 24 HR), SUBCUTANEOUS
     Route: 058
     Dates: start: 20071019, end: 20071029
  4. BUMETANIDE [Concomitant]
  5. LOPRIL (CAPTOPRIL) [Concomitant]
  6. XANAX (ALPRAZOLAM) 10 Y [Concomitant]
  7. GAVISCON [Concomitant]

REACTIONS (8)
  - DUODENAL ULCER HAEMORRHAGE [None]
  - HAEMATOMA [None]
  - HAEMOGLOBIN DECREASED [None]
  - LOSS OF CONSCIOUSNESS [None]
  - MALAISE [None]
  - MELAENA [None]
  - OESOPHAGITIS [None]
  - PALLOR [None]
